FAERS Safety Report 21077025 (Version 1)
Quarter: 2022Q3

REPORT INFORMATION
  Report Type: Spontaneous
  Country: US (occurrence: US)
  Receive Date: 20220713
  Receipt Date: 20220713
  Transmission Date: 20221026
  Serious: No
  Sender: FDA-Public Use
  Company Number: US-PFIZER INC-202200941407

PATIENT
  Age: 65 Year
  Sex: Female
  Weight: 62.6 kg

DRUGS (3)
  1. ADRIAMYCIN [Suspect]
     Active Substance: DOXORUBICIN HYDROCHLORIDE
     Indication: Small intestinal obstruction
     Dosage: UNK
     Dates: start: 202204
  2. CYTOXAN [Suspect]
     Active Substance: CYCLOPHOSPHAMIDE
     Indication: Small intestinal obstruction
     Dosage: UNK
     Dates: start: 202204
  3. CISPLATIN [Suspect]
     Active Substance: CISPLATIN
     Indication: Small intestinal obstruction
     Dosage: UNK
     Dates: start: 202204

REACTIONS (1)
  - Dysgeusia [Unknown]

NARRATIVE: CASE EVENT DATE: 20220401
